FAERS Safety Report 16152051 (Version 1)
Quarter: 2019Q2

REPORT INFORMATION
  Report Type: Spontaneous
  Country: CN (occurrence: CN)
  Receive Date: 20190403
  Receipt Date: 20190403
  Transmission Date: 20190711
  Serious: Yes (Other)
  Sender: FDA-Public Use
  Company Number: CN-PFIZER INC-2019139267

PATIENT
  Age: 7 Month
  Sex: Female
  Weight: 7.5 kg

DRUGS (4)
  1. CETIRIZINE [Suspect]
     Active Substance: CETIRIZINE HYDROCHLORIDE
     Indication: HYPERSENSITIVITY
     Dosage: 2 ML, 1X/DAY
     Route: 048
     Dates: start: 20190319
  2. CHLORPHENIRAMINE [CHLORPHENAMINE] [Suspect]
     Active Substance: CHLORPHENIRAMINE
     Indication: HYPERSENSITIVITY
     Dosage: 1 MG, 2X/DAY
     Route: 048
     Dates: start: 20190319
  3. METHYLPREDNISOLONE SODIUM SUCCINATE. [Suspect]
     Active Substance: METHYLPREDNISOLONE SODIUM SUCCINATE
     Indication: HYPERSENSITIVITY
     Dosage: 7.5 MG, 3X/DAY
     Route: 041
     Dates: start: 20190319
  4. GLUCOSE INJECTION [Concomitant]
     Active Substance: DEXTROSE
     Dosage: 20 ML, 3X/DAY
     Route: 041
     Dates: start: 20190319

REACTIONS (2)
  - Rash maculo-papular [Recovering/Resolving]
  - Rash [Recovering/Resolving]

NARRATIVE: CASE EVENT DATE: 20190320
